FAERS Safety Report 4340140-9 (Version None)
Quarter: 2004Q2

REPORT INFORMATION
  Report Type: 
  Country: None (occurrence: None)
  Receive Date: 20040416
  Receipt Date: 20040416
  Transmission Date: 20050107
  Serious: Yes (Hospitalization)
  Sender: FDA-Public Use
  Company Number: None

PATIENT
  Age: 63 Year
  Sex: Male
  Weight: 86.182 kg

DRUGS (1)
  1. CELEBREX [Suspect]
     Indication: TENDONITIS
     Dosage: 200 MG QD ORAL
     Route: 048
     Dates: start: 20040224, end: 20040305

REACTIONS (8)
  - DIZZINESS [None]
  - FLUSHING [None]
  - HYPERHIDROSIS [None]
  - HYPOTENSION [None]
  - LYMPHADENOPATHY [None]
  - NAUSEA [None]
  - RESPIRATORY ACIDOSIS [None]
  - VENTRICULAR HYPERTROPHY [None]
